FAERS Safety Report 9650462 (Version 3)
Quarter: 2014Q1

REPORT INFORMATION
  Report Type: Report from Study
  Country: US (occurrence: US)
  Receive Date: 20131028
  Receipt Date: 20140303
  Transmission Date: 20141002
  Serious: Yes (Death, Hospitalization, Other)
  Sender: FDA-Public Use
  Company Number: PHEH2012US026068

PATIENT
  Sex: Male
  Weight: 72.11 kg

DRUGS (19)
  1. GLEEVEC [Suspect]
     Indication: GASTROINTESTINAL STROMAL TUMOUR
     Dosage: 400 MG, QD (ONE BY MOUTH ONCE A DAY)
     Route: 048
     Dates: start: 20111222
  2. GLEEVEC [Suspect]
     Dosage: 400 MG, QD  (ONE BY MOUTH ONCE A DAY)
     Route: 048
  3. LIPITOR [Concomitant]
     Dosage: 40 MG, DAILY
     Route: 048
  4. ALBUTEROL [Concomitant]
     Dosage: 90 UG PER ACTUATION, UNK
  5. FLUTICASONE [Concomitant]
     Dosage: 250 UKN, UNK
  6. SALMETEROL [Concomitant]
     Dosage: 50 UKN, UNK
  7. METFORMIN [Concomitant]
     Dosage: 500 MG, BID
     Route: 048
  8. VALSARTAN [Concomitant]
     Dosage: 160 MG, DAILY
     Route: 048
  9. ADVAIR DISKUS [Concomitant]
     Dosage: 1 DF, BID
  10. PROVENTIL HFA//SALBUTAMOL [Concomitant]
     Dosage: 2 DF (2 PUFFS, 5 MIN APART AS DIRECTED) UNK
  11. DIOVAN [Concomitant]
     Dosage: 160 MG, QD
     Route: 048
  12. GLUCOPHAGE [Concomitant]
     Dosage: 500 MG, BID
     Route: 048
  13. PROTONIX [Concomitant]
     Dosage: 20 MG, QD
     Route: 048
  14. MULTI-VIT [Concomitant]
     Dosage: UNK UKN, QD
     Route: 048
  15. FERROUS SULPHATE [Concomitant]
     Dosage: 325 MG, TID
     Route: 048
  16. MELATONIN [Concomitant]
     Dosage: 1 MG (AT BEDTIME), UNK
     Route: 048
  17. AMBIEN [Concomitant]
     Indication: INSOMNIA
     Dosage: 10 MG, PRN
  18. XANAX [Concomitant]
     Indication: ANXIETY
     Dosage: 0.5 MG, (ONE HALF TO ONE UPTO 3 TIMES A DAY
  19. OXYCODONE HCL [Concomitant]
     Indication: PAIN
     Dosage: 5 MG, (ONE OR TWO TAB FOUR TIMES A DAY)

REACTIONS (42)
  - Gastrointestinal stromal tumour [Fatal]
  - Malignant neoplasm progression [Fatal]
  - Metastases to liver [Fatal]
  - Metastases to lung [Fatal]
  - Metastases to pancreas [Fatal]
  - Concomitant disease progression [Unknown]
  - Jaundice cholestatic [Unknown]
  - Pneumonia aspiration [Unknown]
  - Sepsis [Unknown]
  - Asthenia [Unknown]
  - Odynophagia [Unknown]
  - Hypophagia [Unknown]
  - General physical health deterioration [Unknown]
  - Bronchitis [Unknown]
  - Chronic obstructive pulmonary disease [Unknown]
  - Pleural effusion [Unknown]
  - Gait disturbance [Unknown]
  - Depressed level of consciousness [Unknown]
  - Eye disorder [Unknown]
  - Systemic inflammatory response syndrome [Unknown]
  - Malnutrition [Unknown]
  - Haematochezia [Unknown]
  - Flank pain [Unknown]
  - Meniscus injury [Unknown]
  - Fibrous histiocytoma [Unknown]
  - Intermittent claudication [Unknown]
  - Venous insufficiency [Unknown]
  - Rhinitis allergic [Unknown]
  - Respiratory tract congestion [Unknown]
  - Alveolar lung disease [Unknown]
  - Dysphagia [Unknown]
  - Dyspnoea [Unknown]
  - Cough [Unknown]
  - Dehydration [Unknown]
  - Back pain [Unknown]
  - Arthritis [Unknown]
  - Paraesthesia [Unknown]
  - Osteoarthritis [Unknown]
  - Anaemia of chronic disease [Unknown]
  - Blood lactate dehydrogenase increased [Unknown]
  - Tachycardia [Unknown]
  - Hypotension [Unknown]
